FAERS Safety Report 7201277-X (Version None)
Quarter: 2010Q4

REPORT INFORMATION
  Report Type: 
  Country: None (occurrence: None)
  Receive Date: 20101229
  Receipt Date: 20101222
  Transmission Date: 20110411
  Serious: No
  Sender: FDA-Public Use
  Company Number: US-JNJFOC-20101207933

PATIENT
  Sex: Male
  Weight: 99.79 kg

DRUGS (12)
  1. DURAGESIC-50 [Suspect]
     Indication: PAIN
     Route: 062
  2. LORTAB [Concomitant]
     Indication: ILL-DEFINED DISORDER
     Route: 048
  3. ALBUTEROL INHALERS [Concomitant]
     Indication: ILL-DEFINED DISORDER
     Dosage: 1-2 PUFFS EVERY 4-6 HOURS AS NEEDED
     Route: 055
  4. PRILOSEC TABLETS [Concomitant]
     Indication: ILL-DEFINED DISORDER
     Route: 048
  5. METOPROLOL TARTRATE [Concomitant]
     Indication: ILL-DEFINED DISORDER
     Route: 048
  6. MELOXICAM [Concomitant]
     Indication: ARTHRITIS
     Route: 048
  7. ASPIRIN [Concomitant]
     Indication: BLOOD CHOLESTEROL
     Route: 048
  8. ASPIRIN [Concomitant]
     Indication: CARDIOVASCULAR DISORDER
     Route: 048
  9. ASPIRIN [Concomitant]
     Indication: CARDIAC DISORDER
     Route: 048
  10. PLAVIX [Concomitant]
     Indication: BLOOD CHOLESTEROL
     Route: 048
  11. PLAVIX [Concomitant]
     Indication: CARDIOVASCULAR DISORDER
     Route: 048
  12. PLAVIX [Concomitant]
     Indication: CARDIAC DISORDER
     Route: 048

REACTIONS (2)
  - DRUG DISPENSING ERROR [None]
  - EXPIRED DRUG ADMINISTERED [None]
